FAERS Safety Report 24403979 (Version 1)
Quarter: 2024Q4

REPORT INFORMATION
  Report Type: Spontaneous
  Country: FR (occurrence: FR)
  Receive Date: 20241007
  Receipt Date: 20241007
  Transmission Date: 20250115
  Serious: Yes (Hospitalization)
  Sender: NOVARTIS
  Company Number: None

PATIENT
  Age: 17 Year
  Sex: Female

DRUGS (1)
  1. TRAMETINIB [Suspect]
     Active Substance: TRAMETINIB
     Indication: Neurofibroma
     Dosage: 1 DOSAGE FORM, QD
     Route: 048
     Dates: start: 20200325, end: 20230124

REACTIONS (4)
  - Erysipelas [Recovered/Resolved with Sequelae]
  - Xerosis [Recovered/Resolved with Sequelae]
  - Rash pruritic [Recovered/Resolved with Sequelae]
  - Dermatitis acneiform [Recovered/Resolved with Sequelae]

NARRATIVE: CASE EVENT DATE: 20210409
